FAERS Safety Report 13656879 (Version 3)
Quarter: 2017Q3

REPORT INFORMATION
  Report Type: Spontaneous
  Country: US (occurrence: US)
  Receive Date: 20170615
  Receipt Date: 20170825
  Transmission Date: 20171127
  Serious: No
  Sender: FDA-Public Use
  Company Number: US-ACTELION-A-NJ2017-155330

PATIENT
  Age: 63 Year
  Sex: Male

DRUGS (12)
  1. ADCIRCA [Concomitant]
     Active Substance: TADALAFIL
  2. ASPIRIN. [Concomitant]
     Active Substance: ASPIRIN
  3. AMBRISENTAN [Suspect]
     Active Substance: AMBRISENTAN
     Dosage: 10 MG, QD
     Route: 065
  4. COREG [Concomitant]
     Active Substance: CARVEDILOL
  5. ULORIC [Concomitant]
     Active Substance: FEBUXOSTAT
  6. UPTRAVI [Suspect]
     Active Substance: SELEXIPAG
     Indication: PRODUCT USED FOR UNKNOWN INDICATION
     Dosage: 1000 MCG, UNK
     Route: 048
  7. ALDACTONE [Concomitant]
     Active Substance: SPIRONOLACTONE
  8. DEMADEX [Concomitant]
     Active Substance: TORSEMIDE
  9. UPTRAVI [Suspect]
     Active Substance: SELEXIPAG
     Dosage: 800 MCG, BID
     Route: 048
  10. UPTRAVI [Suspect]
     Active Substance: SELEXIPAG
     Dosage: 600 MCG, BID
     Route: 048
  11. AMBRISENTAN [Suspect]
     Active Substance: AMBRISENTAN
     Indication: PRODUCT USED FOR UNKNOWN INDICATION
     Dosage: 5 MG, QD
     Route: 065
  12. KLOR-CON [Concomitant]
     Active Substance: POTASSIUM CHLORIDE

REACTIONS (5)
  - Arthralgia [Unknown]
  - Myalgia [Unknown]
  - Headache [Unknown]
  - Pain [Unknown]
  - Nausea [Unknown]

NARRATIVE: CASE EVENT DATE: 20170629
